FAERS Safety Report 10119156 (Version 1)
Quarter: 2014Q2

REPORT INFORMATION
  Report Type: Spontaneous
  Country: US (occurrence: US)
  Receive Date: 20140425
  Receipt Date: 20140425
  Transmission Date: 20141212
  Serious: No
  Sender: FDA-Public Use
  Company Number: US-PFIZER INC-2014113769

PATIENT
  Sex: Female

DRUGS (1)
  1. XELJANZ [Suspect]
     Dosage: 5 MG, UNK
     Dates: start: 20140405

REACTIONS (4)
  - Sinus headache [Unknown]
  - Headache [Unknown]
  - Toothache [Unknown]
  - Oral pain [Unknown]
